FAERS Safety Report 11925165 (Version 1)
Quarter: 2016Q1

REPORT INFORMATION
  Report Type: Spontaneous
  Country: CN (occurrence: CN)
  Receive Date: 20160118
  Receipt Date: 20160118
  Transmission Date: 20160526
  Serious: Yes (Other)
  Sender: FDA-Public Use
  Company Number: CN-GILEAD-2016-0192298

PATIENT
  Age: 40 Year
  Sex: Male

DRUGS (1)
  1. VIREAD [Suspect]
     Active Substance: TENOFOVIR DISOPROXIL FUMARATE
     Indication: HEPATITIS B
     Dosage: 1 DF, QD
     Route: 048
     Dates: start: 201502

REACTIONS (4)
  - Ligament pain [Recovering/Resolving]
  - Ligament injury [Recovering/Resolving]
  - Osteonecrosis [Unknown]
  - Effusion [Recovering/Resolving]

NARRATIVE: CASE EVENT DATE: 2015
